FAERS Safety Report 13303522 (Version 2)
Quarter: 2017Q2

REPORT INFORMATION
  Report Type: Report from Study
  Country: US (occurrence: US)
  Receive Date: 20170307
  Receipt Date: 20170602
  Transmission Date: 20170830
  Serious: Yes (Hospitalization, Other)
  Sender: FDA-Public Use
  Company Number: US-AMGEN-USASL2017014213

PATIENT
  Age: 57 Year
  Sex: Female
  Weight: 74.8 kg

DRUGS (13)
  1. ACYCLOVIR. [Concomitant]
     Active Substance: ACYCLOVIR
  2. POSACONAZOLE [Concomitant]
     Active Substance: POSACONAZOLE
  3. BLINCYTO [Suspect]
     Active Substance: BLINATUMOMAB
     Indication: PHILADELPHIA CHROMOSOME POSITIVE
     Dosage: 28 MUG, QD
     Route: 042
     Dates: start: 20170111, end: 20170112
  4. CYCLOPHOSPHAMIDE. [Concomitant]
     Active Substance: CYCLOPHOSPHAMIDE
  5. LOVENOX [Concomitant]
     Active Substance: ENOXAPARIN SODIUM
     Indication: PROPHYLAXIS
     Dosage: 40 MG, QD
     Route: 058
  6. URSODIOL. [Concomitant]
     Active Substance: URSODIOL
     Indication: PROPHYLAXIS
     Dosage: 500 MG, BID
     Route: 048
  7. ZOFRAN [Concomitant]
     Active Substance: ONDANSETRON HYDROCHLORIDE
     Indication: PROPHYLAXIS OF NAUSEA AND VOMITING
  8. CEFDINIR. [Concomitant]
     Active Substance: CEFDINIR
  9. PHENERGAN [Concomitant]
     Active Substance: PROMETHAZINE HYDROCHLORIDE
     Indication: PROPHYLAXIS OF NAUSEA AND VOMITING
  10. METHOTREXATE. [Concomitant]
     Active Substance: METHOTREXATE
     Indication: PROPHYLAXIS
  11. BLINCYTO [Suspect]
     Active Substance: BLINATUMOMAB
     Indication: ACUTE LYMPHOCYTIC LEUKAEMIA
     Dosage: 9 MUG, QD
     Route: 042
     Dates: start: 20170104, end: 20170110
  12. BUSULFAN. [Concomitant]
     Active Substance: BUSULFAN
  13. ENOXAPARIN [Concomitant]
     Active Substance: ENOXAPARIN
     Indication: PROPHYLAXIS

REACTIONS (9)
  - Sleep disorder [Unknown]
  - Anxiety [Unknown]
  - Gastroenteritis norovirus [Unknown]
  - Procedural pain [Recovering/Resolving]
  - Excoriation [Unknown]
  - Migraine [Unknown]
  - Off label use [Unknown]
  - Hypothyroidism [Unknown]
  - Clostridium difficile colitis [Recovering/Resolving]
